FAERS Safety Report 14052859 (Version 2)
Quarter: 2018Q1

REPORT INFORMATION
  Report Type: Spontaneous
  Country: US (occurrence: US)
  Receive Date: 20171005
  Receipt Date: 20180117
  Transmission Date: 20180508
  Serious: Yes (Hospitalization)
  Sender: FDA-Public Use
  Company Number: US-JNJFOC-20170921474

PATIENT
  Age: 48 Year
  Sex: Female
  Weight: 82.6 kg

DRUGS (1)
  1. XARELTO [Suspect]
     Active Substance: RIVAROXABAN
     Indication: PULMONARY EMBOLISM
     Route: 048
     Dates: start: 20161014, end: 20170220

REACTIONS (4)
  - Haematoma [Recovering/Resolving]
  - Menometrorrhagia [Recovering/Resolving]
  - Epistaxis [Unknown]
  - Ecchymosis [Recovering/Resolving]

NARRATIVE: CASE EVENT DATE: 20170103
